FAERS Safety Report 6370089-1 (Version None)
Quarter: 2009Q3

REPORT INFORMATION
  Report Type: 
  Country: None (occurrence: None)
  Receive Date: 20090923
  Receipt Date: 20070606
  Transmission Date: 20100115
  Serious: Yes (Hospitalization, Other)
  Sender: FDA-Public Use
  Company Number: US-ASTRAZENECA-2006UW21939

PATIENT
  Age: 19786 Day
  Sex: Female
  Weight: 99.8 kg

DRUGS (22)
  1. SEROQUEL [Suspect]
     Indication: DEPRESSION
     Route: 048
     Dates: start: 20010101
  2. SEROQUEL [Suspect]
     Indication: BIPOLAR DISORDER
     Route: 048
     Dates: start: 20010101
  3. SEROQUEL [Suspect]
     Route: 048
     Dates: start: 20021025
  4. SEROQUEL [Suspect]
     Route: 048
     Dates: start: 20021025
  5. OLANZAPINE [Concomitant]
  6. SOMA [Concomitant]
  7. NORCO [Concomitant]
  8. DIAZEPAM [Concomitant]
  9. GLUCOTROL [Concomitant]
  10. ACCUPRIL [Concomitant]
  11. GLUCOPHAGE [Concomitant]
  12. EFFEXOR [Concomitant]
  13. AVANDIA [Concomitant]
  14. LEXAPRO [Concomitant]
     Route: 048
  15. LANTUS [Concomitant]
     Dosage: 80 UNITS
  16. TRAZODONE [Concomitant]
     Route: 048
  17. ZOLOFT [Concomitant]
  18. HALOPERIDOL [Concomitant]
  19. ALPRAZOLAM [Concomitant]
     Route: 048
  20. AMBIEN [Concomitant]
     Indication: SLEEP DISORDER
     Route: 048
  21. LORTAB [Concomitant]
  22. LIPITOR [Concomitant]

REACTIONS (4)
  - DIABETES MELLITUS [None]
  - SUICIDAL BEHAVIOUR [None]
  - SUICIDAL IDEATION [None]
  - TARDIVE DYSKINESIA [None]
